FAERS Safety Report 19182055 (Version 4)
Quarter: 2021Q4

REPORT INFORMATION
  Report Type: Report from Study
  Country: BR (occurrence: BR)
  Receive Date: 20210426
  Receipt Date: 20211117
  Transmission Date: 20220303
  Serious: Yes (Other)
  Sender: FDA-Public Use
  Company Number: BR-SHIRE-BR201502960

PATIENT
  Age: 11 Year
  Sex: Male
  Weight: 28 kg

DRUGS (3)
  1. IDURSULFASE [Suspect]
     Active Substance: IDURSULFASE
     Indication: Mucopolysaccharidosis II
     Dosage: 18 MILLIGRAM, 1/WEEK
     Route: 042
     Dates: start: 20150401
  2. IDURSULFASE [Suspect]
     Active Substance: IDURSULFASE
     Dosage: 6 MILLIGRAM, 1/WEEK
     Route: 042
     Dates: start: 20090306, end: 20180910
  3. IDURSULFASE [Suspect]
     Active Substance: IDURSULFASE
     Dosage: 0.35 MILLIGRAM/KILOGRAM, 1/WEEK
     Route: 042
     Dates: start: 20090828

REACTIONS (10)
  - Infusion related reaction [Recovered/Resolved]
  - Epilepsy [Recovered/Resolved]
  - Hyperhidrosis [Recovered/Resolved]
  - Urticaria [Recovered/Resolved]
  - Oxygen saturation decreased [Recovered/Resolved]
  - Hyperaemia [Recovered/Resolved]
  - Pallor [Recovered/Resolved]
  - Infusion site pruritus [Recovered/Resolved]
  - Pruritus [Recovered/Resolved]
  - Cyanosis [Recovered/Resolved]

NARRATIVE: CASE EVENT DATE: 20090401
